FAERS Safety Report 4834426-9 (Version None)
Quarter: 2005Q4

REPORT INFORMATION
  Report Type: 
  Country: None (occurrence: None)
  Receive Date: 20051114
  Receipt Date: 20051101
  Transmission Date: 20060501
  Serious: Yes (Other)
  Sender: FDA-Public Use
  Company Number: 2005143212

PATIENT
  Sex: Male
  Weight: 111.5849 kg

DRUGS (5)
  1. CELEBREX [Suspect]
     Indication: ARTHRALGIA
     Dosage: (2 IN 1 D), ORAL
     Route: 048
     Dates: start: 20040101
  2. ZYRTEC [Suspect]
     Indication: MULTIPLE ALLERGIES
     Dosage: 10 MG (10 MG, 1 IN 1 D), ORAL
     Route: 048
  3. FLONASE [Concomitant]
  4. VITAMINS (VITAMINS) [Concomitant]
  5. ASPIRIN [Concomitant]

REACTIONS (13)
  - ARTHRITIS [None]
  - BURSITIS [None]
  - CONDITION AGGRAVATED [None]
  - COUGH [None]
  - DRUG DOSE OMISSION [None]
  - EXOSTOSIS [None]
  - FEELING ABNORMAL [None]
  - FORMICATION [None]
  - GASTROOESOPHAGEAL REFLUX DISEASE [None]
  - LACRIMATION INCREASED [None]
  - PRURITUS [None]
  - TRIGGER FINGER [None]
  - UNEVALUABLE EVENT [None]
